FAERS Safety Report 22203644 (Version 1)
Quarter: 2023Q2

REPORT INFORMATION
  Report Type: Spontaneous
  Country: US (occurrence: US)
  Receive Date: 20230412
  Receipt Date: 20230412
  Transmission Date: 20230722
  Serious: No
  Sender: FDA-Public Use
  Company Number: US-BAYER-2023A048149

PATIENT
  Age: 71 Year
  Sex: Female

DRUGS (4)
  1. ASTEPRO [Suspect]
     Active Substance: AZELASTINE HYDROCHLORIDE
     Dosage: UNK
     Dates: start: 202211, end: 20230404
  2. YUPELRI [Concomitant]
     Active Substance: REVEFENACIN
  3. PERFOROMIST [Concomitant]
     Active Substance: FORMOTEROL FUMARATE DIHYDRATE
  4. BUDESONIDE [Concomitant]
     Active Substance: BUDESONIDE

REACTIONS (3)
  - Hypersensitivity [Unknown]
  - Nasal obstruction [Unknown]
  - Nasal oedema [Unknown]

NARRATIVE: CASE EVENT DATE: 20230404
